FAERS Safety Report 10250767 (Version 1)
Quarter: 2014Q2

REPORT INFORMATION
  Report Type: Spontaneous
  Country: DE (occurrence: DE)
  Receive Date: 20140620
  Receipt Date: 20140620
  Transmission Date: 20141212
  Serious: Yes (Other)
  Sender: FDA-Public Use
  Company Number: DE-WATSON-2014-12986

PATIENT
  Age: 37 Year
  Sex: Male

DRUGS (6)
  1. MIRTAZAPINE (UNKNOWN) [Suspect]
     Indication: PRODUCT USED FOR UNKNOWN INDICATION
     Dosage: 15 MG, DAILY
     Route: 048
     Dates: start: 20131202, end: 20131203
  2. MIRTAZAPINE (UNKNOWN) [Suspect]
     Dosage: 30 MG, DAILY
     Route: 048
     Dates: start: 20131204
  3. TREVILOR [Suspect]
     Indication: PRODUCT USED FOR UNKNOWN INDICATION
     Dosage: 75 MG, DAILY
     Route: 048
     Dates: start: 20131205, end: 20131210
  4. TREVILOR [Suspect]
     Dosage: 150 MG, DAILY
     Route: 048
     Dates: start: 20131211
  5. ZYPREXA [Suspect]
     Indication: PRODUCT USED FOR UNKNOWN INDICATION
     Dosage: 5 MG, DAILY
     Route: 048
     Dates: start: 20131216, end: 20140109
  6. ZYPREXA [Suspect]
     Dosage: 7.5 MG, DAILY
     Route: 048
     Dates: start: 20140110

REACTIONS (4)
  - Hyperlipidaemia [Not Recovered/Not Resolved]
  - Weight increased [Not Recovered/Not Resolved]
  - Increased appetite [Not Recovered/Not Resolved]
  - Blood triglycerides increased [Not Recovered/Not Resolved]
